FAERS Safety Report 12856619 (Version 1)
Quarter: 2016Q4

REPORT INFORMATION
  Report Type: Spontaneous
  Country: GB (occurrence: GB)
  Receive Date: 20161018
  Receipt Date: 20161018
  Transmission Date: 20170207
  Serious: Yes (Other)
  Sender: FDA-Public Use
  Company Number: GB-SUN PHARMACEUTICAL INDUSTRIES LTD-2016RR-125693

PATIENT
  Age: 54 Year
  Sex: Female
  Weight: 59 kg

DRUGS (2)
  1. CIPROFLOXACIN. [Suspect]
     Active Substance: CIPROFLOXACIN
     Indication: TYPHOID FEVER
     Dosage: 500 MG, QD
     Route: 048
     Dates: start: 20160830, end: 20160913
  2. DICLOFENAC NATRIUM [Concomitant]
     Indication: PRODUCT USED FOR UNKNOWN INDICATION
     Dosage: UNK
     Route: 065

REACTIONS (12)
  - Flushing [Unknown]
  - Urticaria [Recovering/Resolving]
  - Tinnitus [Recovering/Resolving]
  - Skin discolouration [Unknown]
  - Body temperature increased [Unknown]
  - Erythema nodosum [Unknown]
  - Insomnia [Unknown]
  - Gait disturbance [Unknown]
  - Scab [Unknown]
  - Rash pustular [Recovering/Resolving]
  - Pruritus [Recovering/Resolving]
  - Photosensitivity reaction [Recovering/Resolving]

NARRATIVE: CASE EVENT DATE: 20160912
